FAERS Safety Report 23175307 (Version 1)
Quarter: 2023Q4

REPORT INFORMATION
  Report Type: Spontaneous
  Country: US (occurrence: US)
  Receive Date: 20231113
  Receipt Date: 20231113
  Transmission Date: 20240109
  Serious: Yes (Hospitalization)
  Sender: FDA-Public Use
  Company Number: US-drreddys-LIT/USA/23/0183199

PATIENT
  Age: 22 Year
  Sex: Male

DRUGS (5)
  1. PREGABALIN [Suspect]
     Active Substance: PREGABALIN
     Indication: Idiopathic generalised epilepsy
  2. LAMOTRIGINE [Concomitant]
     Active Substance: LAMOTRIGINE
     Indication: Idiopathic generalised epilepsy
  3. TOPIRAMATE [Concomitant]
     Active Substance: TOPIRAMATE
     Indication: Idiopathic generalised epilepsy
  4. BRIVARACETAM [Concomitant]
     Active Substance: BRIVARACETAM
     Indication: Idiopathic generalised epilepsy
  5. CLOBAZAM [Concomitant]
     Active Substance: CLOBAZAM
     Indication: Idiopathic generalised epilepsy

REACTIONS (2)
  - Petit mal epilepsy [Recovered/Resolved]
  - Paradoxical drug reaction [Recovered/Resolved]
